FAERS Safety Report 6457265-4 (Version None)
Quarter: 2009Q4

REPORT INFORMATION
  Report Type: 
  Country: None (occurrence: None)
  Receive Date: 20091125
  Receipt Date: 20091116
  Transmission Date: 20100525
  Serious: Yes (Death, Other)
  Sender: FDA-Public Use
  Company Number: US-PFIZER INC-2009298531

PATIENT
  Age: 46 Year
  Sex: Male

DRUGS (3)
  1. VFEND [Suspect]
     Dosage: 200 MG, 2X/DAY
  2. PREDNISONE [Concomitant]
  3. METHOTREXATE [Suspect]

REACTIONS (2)
  - PHOTOSENSITIVITY REACTION [None]
  - SQUAMOUS CELL CARCINOMA [None]
